FAERS Safety Report 8887595 (Version 1)
Quarter: 2012Q4

REPORT INFORMATION
  Report Type: Spontaneous
  Country: US (occurrence: None)
  Receive Date: 20121101
  Receipt Date: 20121101
  Transmission Date: 20130627
  Serious: Yes (Other)
  Sender: FDA-Public Use
  Company Number: None

PATIENT
  Age: 59 Year
  Sex: Male
  Weight: 104.33 kg

DRUGS (4)
  1. CYMBALTA [Suspect]
     Indication: DEPRESSION
     Route: 048
     Dates: start: 20121009, end: 20121029
  2. CYMBALTA [Suspect]
     Indication: ANXIETY
     Route: 048
     Dates: start: 20121009, end: 20121029
  3. CYMBALTA [Suspect]
     Indication: DEPRESSION
     Route: 048
  4. CYMBALTA [Suspect]
     Indication: ANXIETY
     Route: 048

REACTIONS (10)
  - Headache [None]
  - Nausea [None]
  - Vomiting [None]
  - Diarrhoea [None]
  - Drug dose omission [None]
  - Hyperhidrosis [None]
  - Dizziness [None]
  - Influenza like illness [None]
  - Withdrawal syndrome [None]
  - Liver injury [None]
